FAERS Safety Report 15697714 (Version 1)
Quarter: 2018Q4

REPORT INFORMATION
  Report Type: Spontaneous
  Country: FR (occurrence: FR)
  Receive Date: 20181207
  Receipt Date: 20181207
  Transmission Date: 20190205
  Serious: Yes (Hospitalization, Other)
  Sender: FDA-Public Use
  Company Number: FR-TEVA-2018-FR-982823

PATIENT
  Age: 46 Year
  Sex: Male
  Weight: 91 kg

DRUGS (7)
  1. TAVANIC [Suspect]
     Active Substance: LEVOFLOXACIN
     Indication: SPUTUM PURULENT
  2. BECLOMETASONE DIPROPIONATE [Suspect]
     Active Substance: BECLOMETHASONE DIPROPIONATE
     Indication: RESPIRATORY DISORDER
     Dosage: 1 DOSAGE FORMS DAILY;
     Route: 055
     Dates: start: 20120815, end: 20120820
  3. CELESTENE [BETAMETHASONE] [Concomitant]
     Indication: RESPIRATORY DISORDER
     Dosage: UNK
     Dates: start: 201208, end: 201208
  4. VENTOLINE [SALBUTAMOL] [Suspect]
     Active Substance: ALBUTEROL SULFATE
     Indication: RESPIRATORY DISORDER
     Dosage: 2 DOSAGE FORMS DAILY;
     Route: 055
     Dates: start: 20120815, end: 20120819
  5. CLARITHROMYCIN. [Concomitant]
     Active Substance: CLARITHROMYCIN
     Indication: RESPIRATORY TRACT INFECTION
     Route: 048
     Dates: start: 201208, end: 201208
  6. TAVANIC [Suspect]
     Active Substance: LEVOFLOXACIN
     Indication: PYREXIA
  7. TAVANIC [Suspect]
     Active Substance: LEVOFLOXACIN
     Indication: COUGH
     Dosage: 500 MILLIGRAM DAILY;
     Route: 048
     Dates: start: 20120815, end: 20120820

REACTIONS (4)
  - Rash pustular [Recovered/Resolved]
  - Fungal oesophagitis [Recovering/Resolving]
  - Pyrexia [Recovered/Resolved]
  - Folliculitis [Recovered/Resolved]

NARRATIVE: CASE EVENT DATE: 20120815
